FAERS Safety Report 5234153-2 (Version None)
Quarter: 2007Q1

REPORT INFORMATION
  Report Type: 
  Country: None (occurrence: None)
  Receive Date: 20070209
  Receipt Date: 20070201
  Transmission Date: 20070707
  Serious: Yes (Hospitalization, Disabling, Other)
  Sender: FDA-Public Use
  Company Number: SE-ABBOTT-00P-150-0091252-00

PATIENT
  Sex: Male

DRUGS (1)
  1. KLACID [Suspect]
     Indication: UPPER RESPIRATORY TRACT INFECTION
     Route: 048
     Dates: start: 19991220, end: 19991227

REACTIONS (3)
  - LABORATORY TEST ABNORMAL [None]
  - NEPHRITIS INTERSTITIAL [None]
  - WEIGHT DECREASED [None]
